FAERS Safety Report 8509643-7 (Version None)
Quarter: 2012Q3

REPORT INFORMATION
  Report Type: 
  Country: None (occurrence: None)
  Receive Date: 20120713
  Receipt Date: 20120627
  Transmission Date: 20120928
  Serious: Yes (Other)
  Sender: FDA-Public Use
  Company Number: CHPA2012US014661

PATIENT
  Age: 61 Year
  Sex: Female

DRUGS (2)
  1. ALUMINUM HYDROXIDE AND MAGNESIUM TRISILICATE [Suspect]
     Indication: ABDOMINAL DISCOMFORT
     Dosage: UNK, PRN
     Route: 048
     Dates: start: 19960101, end: 20060101
  2. CARDIAC THERAPY [Concomitant]
     Dosage: UNK, UNK

REACTIONS (7)
  - BACK PAIN [None]
  - ROAD TRAFFIC ACCIDENT [None]
  - ULCER HAEMORRHAGE [None]
  - STRESS [None]
  - SPINAL FRACTURE [None]
  - ACTIVITIES OF DAILY LIVING IMPAIRED [None]
  - PAIN [None]
